FAERS Safety Report 5384065-9 (Version None)
Quarter: 2007Q3

REPORT INFORMATION
  Report Type: 
  Country: None (occurrence: None)
  Receive Date: 20070711
  Receipt Date: 20070710
  Transmission Date: 20080115
  Serious: Yes (Hospitalization)
  Sender: FDA-Public Use
  Company Number: A0662573A

PATIENT
  Age: 82 Year
  Sex: Male

DRUGS (4)
  1. AQUAFRESH SENSITIVE TOOTHPASTE [Suspect]
     Indication: DENTAL CLEANING
     Dates: start: 20060101, end: 20070501
  2. ARTHRITIS MEDICATION [Concomitant]
  3. BLOOD PRESSURE MEDICATION [Concomitant]
  4. HEART MEDICATION [Concomitant]

REACTIONS (7)
  - CIRCULATORY COLLAPSE [None]
  - DIZZINESS [None]
  - MALAISE [None]
  - MICTURITION DISORDER [None]
  - MUSCULAR WEAKNESS [None]
  - PHARMACEUTICAL PRODUCT COMPLAINT [None]
  - STOMACH DISCOMFORT [None]
